FAERS Safety Report 21304338 (Version 1)
Quarter: 2022Q3

REPORT INFORMATION
  Report Type: Spontaneous
  Country: US (occurrence: None)
  Receive Date: 20220907
  Receipt Date: 20220907
  Transmission Date: 20221027
  Serious: No
  Sender: FDA-Public Use
  Company Number: US-ARIS GLOBAL-202107-1251

PATIENT
  Age: 80 Year
  Sex: Female

DRUGS (31)
  1. OXERVATE [Suspect]
     Active Substance: CENEGERMIN-BKBJ
     Indication: Neurotrophic keratopathy
     Route: 047
     Dates: start: 20210715
  2. OXERVATE [Suspect]
     Active Substance: CENEGERMIN-BKBJ
     Indication: Ulcerative keratitis
  3. VENTOLIN HFA [Suspect]
     Active Substance: ALBUTEROL SULFATE
  4. VITAMINS [Concomitant]
     Active Substance: VITAMINS
  5. FUROSEMIDE [Concomitant]
     Active Substance: FUROSEMIDE
  6. HUMIRA (CF) [Concomitant]
  7. PREDNISONE [Concomitant]
     Active Substance: PREDNISONE
  8. VALACYCLOVIR [Concomitant]
     Active Substance: VALACYCLOVIR HYDROCHLORIDE
  9. ADVAIR HFA [Concomitant]
     Active Substance: FLUTICASONE PROPIONATE\SALMETEROL XINAFOATE
  10. DEXILANT [Concomitant]
     Active Substance: DEXLANSOPRAZOLE
  11. VITAMIN C [Concomitant]
     Active Substance: ASCORBIC ACID
  12. VITAMIN D3 [Concomitant]
     Active Substance: CHOLECALCIFEROL
  13. FISH OIL [Concomitant]
     Active Substance: FISH OIL
  14. POTASSIUM [Concomitant]
     Active Substance: POTASSIUM
  15. ASPIRIN [Concomitant]
     Active Substance: ASPIRIN
  16. ROSUVASTATIN CALCIUM [Concomitant]
     Active Substance: ROSUVASTATIN CALCIUM
  17. CLOPIDOGREL [Concomitant]
     Active Substance: CLOPIDOGREL BISULFATE
  18. PAROXETINE [Concomitant]
     Active Substance: PAROXETINE
  19. CARVEDILOL [Concomitant]
     Active Substance: CARVEDILOL
  20. LOSARTAN POTASSIUM [Concomitant]
     Active Substance: LOSARTAN POTASSIUM
  21. BACITRACIN w/POLYMYXIN [Concomitant]
  22. SYSTANE (HYPROMELLOSE 2910 (4000 MPA.S)) [Concomitant]
     Active Substance: HYPROMELLOSE 2910 (4000 MPA.S)
  23. RHOPRESSA [Concomitant]
     Active Substance: NETARSUDIL MESYLATE
  24. LOTEMAX [Concomitant]
     Active Substance: LOTEPREDNOL ETABONATE
  25. SYSTANE (HYPROMELLOSE 2910 (4000 MPA.S)) [Concomitant]
     Active Substance: HYPROMELLOSE 2910 (4000 MPA.S)
  26. REFRESH OPTIVE [Concomitant]
     Active Substance: CARBOXYMETHYLCELLULOSE SODIUM\GLYCERIN
  27. KETOROLAC TROMETHAMINE [Concomitant]
     Active Substance: KETOROLAC TROMETHAMINE
  28. TIMOLOL MALEATE [Concomitant]
     Active Substance: TIMOLOL MALEATE
  29. DUREZOL [Concomitant]
     Active Substance: DIFLUPREDNATE
  30. SIMBRINZA [Concomitant]
     Active Substance: BRIMONIDINE TARTRATE\BRINZOLAMIDE
  31. BESIVANCE [Concomitant]
     Active Substance: BESIFLOXACIN

REACTIONS (1)
  - Eye irritation [Recovered/Resolved]
